FAERS Safety Report 5912865-2 (Version None)
Quarter: 2008Q4

REPORT INFORMATION
  Report Type: 
  Country: None (occurrence: None)
  Receive Date: 20081003
  Receipt Date: 20080922
  Transmission Date: 20090506
  Serious: Yes (Congenital Anomaly, Other)
  Sender: FDA-Public Use
  Company Number: GXKR2008DE09158

PATIENT
  Sex: Male

DRUGS (1)
  1. FLUOXETINE [Suspect]
     Dosage: TRANSPLACENTAL
     Route: 064

REACTIONS (4)
  - CONGENITAL CENTRAL NERVOUS SYSTEM ANOMALY [None]
  - CSF TEST ABNORMAL [None]
  - HEAD DEFORMITY [None]
  - MATERNAL DRUGS AFFECTING FOETUS [None]
